FAERS Safety Report 4452010-6 (Version None)
Quarter: 2004Q3

REPORT INFORMATION
  Report Type: 
  Country: None (occurrence: None)
  Receive Date: 20040916
  Receipt Date: 20040907
  Transmission Date: 20050211
  Serious: Yes (Other)
  Sender: FDA-Public Use
  Company Number: 002656

PATIENT
  Age: 57 Year
  Sex: Female

DRUGS (4)
  1. MEDROXYPROGESTERONE ACETATE [Suspect]
     Dates: start: 19940601, end: 19961101
  2. PROVERA [Suspect]
     Dates: start: 19940601, end: 19961101
  3. PREMARIN [Suspect]
     Dates: start: 19940601, end: 19961101
  4. PREMPRO [Suspect]
     Dates: start: 19961201, end: 19990801

REACTIONS (1)
  - BREAST CANCER FEMALE [None]
